FAERS Safety Report 8125849-3 (Version None)
Quarter: 2012Q1

REPORT INFORMATION
  Report Type: 
  Country: None (occurrence: None)
  Receive Date: 20120209
  Receipt Date: 20120124
  Transmission Date: 20120608
  Serious: Yes (Life-Threatening, Hospitalization, Other)
  Sender: FDA-Public Use
  Company Number: DE-JNJFOC-20111208799

PATIENT
  Age: 41 Year
  Sex: Male
  Weight: 65 kg

DRUGS (1)
  1. REMICADE [Suspect]
     Indication: COLITIS ULCERATIVE
     Route: 042
     Dates: start: 20110623, end: 20110813

REACTIONS (10)
  - HYPOAESTHESIA ORAL [None]
  - RECTAL CANCER METASTATIC [None]
  - PLEURAL EFFUSION [None]
  - PSOAS ABSCESS [None]
  - COLITIS ULCERATIVE [None]
  - PANCYTOPENIA [None]
  - PAIN IN JAW [None]
  - INFECTED DERMAL CYST [None]
  - ILEUS [None]
  - SEPSIS [None]
